FAERS Safety Report 8917732 (Version 1)
Quarter: 2012Q4

REPORT INFORMATION
  Report Type: 
  Country: JP (occurrence: JP)
  Receive Date: 20121119
  Receipt Date: 20121119
  Transmission Date: 20130627
  Serious: Yes (Hospitalization)
  Sender: FDA-Public Use
  Company Number: JP-ROCHE-1083331

PATIENT
  Age: 53 Year
  Sex: Female
  Weight: 65 kg

DRUGS (18)
  1. AVASTIN [Suspect]
     Indication: COLON CANCER METASTATIC
     Route: 041
     Dates: start: 20110830, end: 20120515
  2. LEVOFOLINATE [Concomitant]
     Indication: COLON CANCER METASTATIC
     Route: 041
     Dates: start: 20110830
  3. LEVOFOLINATE [Concomitant]
     Indication: COLON CANCER METASTATIC
     Route: 041
  4. 5-FU [Concomitant]
     Indication: COLON CANCER METASTATIC
     Route: 040
     Dates: start: 20110830
  5. 5-FU [Concomitant]
     Route: 041
     Dates: start: 20110830
  6. 5-FU [Concomitant]
     Route: 040
  7. 5-FU [Concomitant]
     Route: 041
  8. ELPLAT [Concomitant]
     Indication: COLON CANCER METASTATIC
     Route: 041
     Dates: start: 20110830, end: 20120306
  9. ALOXI [Concomitant]
     Indication: PROPHYLAXIS
     Route: 042
     Dates: start: 20110830
  10. DECADRON [Concomitant]
     Indication: PROPHYLAXIS
     Route: 041
     Dates: start: 20110830
  11. MAGNESIUM SULFATE [Concomitant]
     Indication: PROPHYLAXIS
     Dosage: 16.2mEq
     Route: 041
     Dates: start: 20110830, end: 20120306
  12. CALCICOL [Concomitant]
     Indication: PROPHYLAXIS
     Route: 041
     Dates: start: 20110830, end: 20120306
  13. PURSENNID [Concomitant]
     Indication: CONSTIPATION
     Route: 048
     Dates: start: 20111025, end: 20120501
  14. MAGMITT [Concomitant]
     Indication: CONSTIPATION
     Dosage: 2-3 times/day
     Route: 048
     Dates: start: 20111227
  15. URSO [Concomitant]
     Indication: HEPATIC FUNCTION ABNORMAL
     Route: 048
     Dates: start: 20120110, end: 20120918
  16. ALLEGRA [Concomitant]
     Indication: RHINITIS ALLERGIC
     Route: 048
     Dates: start: 20120221, end: 20120530
  17. LYRICA [Concomitant]
     Indication: PROPHYLAXIS
     Route: 048
     Dates: start: 20120228
  18. GOSHA-JINKI-GAN [Concomitant]
     Indication: NEUROPATHY PERIPHERAL
     Route: 048
     Dates: start: 20120306

REACTIONS (5)
  - Congestive cardiomyopathy [Recovering/Resolving]
  - Constipation [Unknown]
  - Neuropathy peripheral [Unknown]
  - Rhinitis allergic [Unknown]
  - Hepatic function abnormal [Unknown]
